FAERS Safety Report 12859091 (Version 1)
Quarter: 2016Q4

REPORT INFORMATION
  Report Type: Spontaneous
  Country: US (occurrence: US)
  Receive Date: 20161018
  Receipt Date: 20161018
  Transmission Date: 20170207
  Serious: Yes (Hospitalization)
  Sender: FDA-Public Use
  Company Number: US-TEVA-702868USA

PATIENT
  Age: 74 Year
  Sex: Female

DRUGS (32)
  1. FENTANYL. [Concomitant]
     Active Substance: FENTANYL
     Indication: GENERAL ANAESTHESIA
     Dosage: 25MCG
     Route: 042
  2. PROPOFOL. [Concomitant]
     Active Substance: PROPOFOL
     Indication: GENERAL ANAESTHESIA
     Dosage: 20MG/ML; 252MG
     Route: 042
  3. ONDANSETRON [Concomitant]
     Active Substance: ONDANSETRON
     Indication: GENERAL ANAESTHESIA
     Dosage: 4MG
     Route: 042
  4. MULTIVITAMIN [Concomitant]
     Active Substance: VITAMINS
     Dosage: EVERY 24 HOUR
     Route: 065
  5. DEXAMETHASONE. [Concomitant]
     Active Substance: DEXAMETHASONE
     Indication: GENERAL ANAESTHESIA
     Dosage: 4MG
     Route: 042
  6. ASCORBIC ACID. [Concomitant]
     Active Substance: ASCORBIC ACID
     Dosage: 500MG EVERY 24 HOURS
     Route: 065
  7. ASPIRIN. [Concomitant]
     Active Substance: ASPIRIN
     Dosage: 81MG EVERY 24 HOURS
     Route: 065
  8. LEVOCETIRIZINE [Concomitant]
     Active Substance: LEVOCETIRIZINE
     Dosage: 5MG
     Route: 065
  9. OLOPATADINE [Concomitant]
     Active Substance: OLOPATADINE
     Dosage: TWICE A DAY
     Route: 045
  10. POTASSIUM CHLORIDE. [Concomitant]
     Active Substance: POTASSIUM CHLORIDE
     Route: 065
  11. MIDAZOLAM [Concomitant]
     Active Substance: MIDAZOLAM\MIDAZOLAM HYDROCHLORIDE
     Indication: GENERAL ANAESTHESIA
     Dosage: 1MG
     Route: 042
  12. PROPOFOL. [Concomitant]
     Active Substance: PROPOFOL
     Indication: GENERAL ANAESTHESIA
     Dosage: 10MG/ML; 150MG
     Route: 042
  13. NEOSTIGMINE [Concomitant]
     Active Substance: NEOSTIGMINE
     Indication: GENERAL ANAESTHESIA
     Dosage: 2MG
     Route: 042
  14. FUROSEMIDE. [Concomitant]
     Active Substance: FUROSEMIDE
     Route: 065
  15. OMEPRAZOLE. [Concomitant]
     Active Substance: OMEPRAZOLE
     Dosage: 40MG EVERY 24 HOUR
     Route: 065
  16. EPHEDRINE. [Concomitant]
     Active Substance: EPHEDRINE
     Indication: GENERAL ANAESTHESIA
     Dosage: 10MG
     Route: 042
  17. OFIRMEV [Concomitant]
     Active Substance: ACETAMINOPHEN
     Indication: GENERAL ANAESTHESIA
     Dosage: 1G
     Route: 042
  18. DICLOFENAC [Concomitant]
     Active Substance: DICLOFENAC
     Indication: PAIN
     Dosage: TWICE A DAY; WHEN NECESSARY
     Route: 061
  19. ERGOCALCIFEROL. [Concomitant]
     Active Substance: ERGOCALCIFEROL
     Route: 065
  20. LISINOPRIL. [Concomitant]
     Active Substance: LISINOPRIL
     Dosage: 20MG EVERY 24 HOUR
     Route: 065
  21. ROPINIROLE. [Concomitant]
     Active Substance: ROPINIROLE
     Indication: PARKINSON^S DISEASE
     Dosage: THRICE A DAY
     Route: 065
  22. GLYCOPYRROLATE. [Concomitant]
     Active Substance: GLYCOPYRROLATE
     Indication: GENERAL ANAESTHESIA
     Dosage: 0.4MG
     Route: 042
  23. ALLOPURINOL. [Concomitant]
     Active Substance: ALLOPURINOL
     Dosage: 100MG
     Route: 065
  24. FLUOXETINE [Suspect]
     Active Substance: FLUOXETINE HYDROCHLORIDE
     Indication: DEPRESSION
     Dosage: 10MG EVERY 24 HOURS
     Route: 065
  25. DULOXETINE. [Interacting]
     Active Substance: DULOXETINE
     Indication: ANXIETY
     Dosage: 60MG EVERY 24 HOURS
     Route: 065
  26. METHYLTHIONINIUM CHLORIDE [Interacting]
     Active Substance: METHYLENE BLUE
     Dosage: 1% 100MG (10ML)
     Route: 042
  27. STALEVO [Concomitant]
     Active Substance: CARBIDOPA\ENTACAPONE\LEVODOPA
     Indication: PARKINSON^S DISEASE
     Dosage: FOUR TIMES A DAY
     Route: 065
  28. LEVOTHYROXINE SODIUM. [Concomitant]
     Active Substance: LEVOTHYROXINE SODIUM
     Dosage: 75MCG EVERY 24 HOUR
     Route: 065
  29. ROCURONIUM BROMIDE. [Concomitant]
     Active Substance: ROCURONIUM BROMIDE
     Indication: GENERAL ANAESTHESIA
     Dosage: 20MG
     Route: 042
  30. ESTRADIOL. [Concomitant]
     Active Substance: ESTRADIOL
     Dosage: 1MG EVERY 24 HOUR
     Route: 065
  31. ROSUVASTATIN. [Concomitant]
     Active Substance: ROSUVASTATIN
     Dosage: EVERY 48 HOUR
     Route: 065
  32. UBIDECARENONE [Concomitant]
     Active Substance: UBIDECARENONE
     Dosage: 300MG EVERY 24 HOUR
     Route: 065

REACTIONS (2)
  - Drug interaction [Recovering/Resolving]
  - Serotonin syndrome [Recovering/Resolving]
